FAERS Safety Report 9812782 (Version 1)
Quarter: 2014Q1

REPORT INFORMATION
  Report Type: Spontaneous
  Country: US (occurrence: US)
  Receive Date: 20140113
  Receipt Date: 20140113
  Transmission Date: 20141002
  Serious: Yes (Hospitalization)
  Sender: FDA-Public Use
  Company Number: US-MYLANLABS-2014S1000287

PATIENT
  Age: 69 Year
  Sex: Male

DRUGS (9)
  1. ASPIRIN [Suspect]
     Indication: IMMUNE TOLERANCE INDUCTION
     Dosage: 20MG AT 8:21 AM ON DAY 1
     Route: 065
  2. ASPIRIN [Suspect]
     Indication: IMMUNE TOLERANCE INDUCTION
     Dosage: 40MG AT 11:25 AM ON DAY 1
     Route: 065
  3. ASPIRIN [Suspect]
     Indication: IMMUNE TOLERANCE INDUCTION
     Dosage: 40MG AT 8:52 AM ON DAY 2
     Route: 065
  4. ASPIRIN [Suspect]
     Indication: IMMUNE TOLERANCE INDUCTION
     Dosage: 81MG AT 12:30 PM ON DAY 2
     Route: 065
  5. EPINEPHRINE [Suspect]
     Indication: ANAPHYLACTIC REACTION
     Dosage: 0.3MG OF 1:10000 EPINEPHRINE
     Route: 030
  6. SALBUTAMOL [Concomitant]
  7. DIPHENHYDRAMINE [Concomitant]
  8. METHYLPREDNISOLONE [Concomitant]
  9. FAMOTIDINE [Concomitant]

REACTIONS (3)
  - Kounis syndrome [Recovered/Resolved]
  - Anaphylactic reaction [Recovered/Resolved]
  - Acute myocardial infarction [Recovered/Resolved]
